FAERS Safety Report 23664864 (Version 1)
Quarter: 2024Q1

REPORT INFORMATION
  Report Type: Report from Study
  Country: FR (occurrence: None)
  Receive Date: 20240322
  Receipt Date: 20240322
  Transmission Date: 20240410
  Serious: Yes (Other)
  Sender: FDA-Public Use
  Company Number: 2023A245293

PATIENT
  Sex: Male
  Weight: 95 kg

DRUGS (2)
  1. IMFINZI [Suspect]
     Active Substance: DURVALUMAB
     Indication: Bile duct cancer
     Route: 042
  2. GEMCITABINE-CISPLATIN [Concomitant]

REACTIONS (1)
  - Cardiac disorder [Unknown]
